FAERS Safety Report 14484579 (Version 1)
Quarter: 2018Q1

REPORT INFORMATION
  Report Type: Spontaneous
  Country: CA (occurrence: CA)
  Receive Date: 20180205
  Receipt Date: 20180205
  Transmission Date: 20180509
  Serious: Yes (Other)
  Sender: FDA-Public Use
  Company Number: CA-ASTRAZENECA-2018SE12115

PATIENT
  Age: 77 Year
  Sex: Female

DRUGS (2)
  1. ALVESCO [Suspect]
     Active Substance: CICLESONIDE
     Indication: PULMONARY FIBROSIS
     Dosage: 200 UG, 2 PUFFS, TWO TIMES A DAY
     Route: 055
     Dates: start: 2015
  2. ALVESCO [Suspect]
     Active Substance: CICLESONIDE
     Indication: PNEUMONIA
     Dosage: 200 UG, 2 PUFFS, TWO TIMES A DAY
     Route: 055
     Dates: start: 2015

REACTIONS (3)
  - Dyspnoea [Recovered/Resolved]
  - Underdose [Unknown]
  - Drug ineffective [Unknown]

NARRATIVE: CASE EVENT DATE: 20180119
